FAERS Safety Report 17250395 (Version 1)
Quarter: 2020Q1

REPORT INFORMATION
  Report Type: Spontaneous
  Country: GB (occurrence: GB)
  Receive Date: 20200109
  Receipt Date: 20200109
  Transmission Date: 20200409
  Serious: Yes (Other)
  Sender: FDA-Public Use
  Company Number: GB-TEVA-2020-GB-1164651

PATIENT
  Age: 68 Year
  Sex: Female

DRUGS (5)
  1. METFORMIN [Suspect]
     Active Substance: METFORMIN HYDROCHLORIDE
     Indication: DIABETES MELLITUS
     Dosage: TAKE 2 WITH BREAKFAST AND 1 WITH EVENING MEAL
     Route: 048
     Dates: start: 20191203, end: 20191208
  2. COD-LIVER OIL [Concomitant]
     Active Substance: COD LIVER OIL
  3. IRBESARTAN. [Concomitant]
     Active Substance: IRBESARTAN
  4. METFORMIN [Suspect]
     Active Substance: METFORMIN HYDROCHLORIDE
     Dosage: 500 MG
     Route: 065
     Dates: start: 20191119
  5. ATORVASTATIN [Concomitant]
     Active Substance: ATORVASTATIN

REACTIONS (5)
  - Diarrhoea [Unknown]
  - Restless legs syndrome [Not Recovered/Not Resolved]
  - Memory impairment [Recovering/Resolving]
  - Malaise [Unknown]
  - Myalgia [Not Recovered/Not Resolved]

NARRATIVE: CASE EVENT DATE: 20191203
